FAERS Safety Report 9454238 (Version 2)
Quarter: 2014Q1

REPORT INFORMATION
  Report Type: Spontaneous
  Country: US (occurrence: US)
  Receive Date: 20130812
  Receipt Date: 20140124
  Transmission Date: 20141002
  Serious: Yes (Hospitalization)
  Sender: FDA-Public Use
  Company Number: US-B.I. PHARMACEUTICALS,INC./RIDGEFIELD-2013-BI-24394BP

PATIENT
  Age: 76 Year
  Sex: Male
  Weight: 87.09 kg

DRUGS (9)
  1. TENORMIN [Concomitant]
     Dosage: 25 MG
     Route: 048
     Dates: start: 20101109, end: 2012
  2. ZOCOR [Concomitant]
     Dosage: 40 MG
     Route: 048
     Dates: start: 20101221, end: 2012
  3. PRADAXA [Suspect]
     Indication: ATRIAL FIBRILLATION
     Route: 048
     Dates: start: 20110725, end: 20110818
  4. APPLE CIDER VINEGAR [Concomitant]
     Route: 048
  5. COZAAR [Concomitant]
     Dosage: 50 MG
     Route: 048
     Dates: start: 20101129
  6. FISH OIL [Concomitant]
     Dosage: 2000 MG
     Route: 048
  7. K-DUR [Concomitant]
     Dosage: 30 MEQ
     Route: 048
     Dates: start: 20110311, end: 2012
  8. LANOXIN [Concomitant]
     Dosage: 0.125 MG
     Route: 048
     Dates: start: 20101011, end: 2012
  9. LASIX [Concomitant]
     Dosage: 40 MG
     Route: 048
     Dates: start: 20110311, end: 2012

REACTIONS (4)
  - Gastrointestinal haemorrhage [Unknown]
  - Haemorrhagic anaemia [Unknown]
  - Respiratory failure [Recovered/Resolved]
  - Acute myocardial infarction [Unknown]
